FAERS Safety Report 24237329 (Version 3)
Quarter: 2024Q4

REPORT INFORMATION
  Report Type: Spontaneous
  Country: FR (occurrence: FR)
  Receive Date: 20240822
  Receipt Date: 20241111
  Transmission Date: 20250115
  Serious: Yes (Hospitalization)
  Sender: AMERICAN REGENT
  Company Number: FR-AMERICAN REGENT INC-2024003176

PATIENT
  Sex: Female

DRUGS (4)
  1. VENOFER [Suspect]
     Active Substance: IRON SUCROSE
     Indication: Iron deficiency
     Dosage: 300 MILLIGRAM, 1 IN 48 HOURS
     Route: 042
     Dates: start: 20240703, end: 20240703
  2. VENOFER [Suspect]
     Active Substance: IRON SUCROSE
     Dosage: 300 MILLIGRAM, 1 IN 48 HOURS (LAST DOSE PRIOR TO THE EVENT)
     Route: 042
     Dates: start: 20240705, end: 20240705
  3. DIMETHICONE\POLYETHYLENE GLYCOL 4000\POTASSIUM CHLORIDE\SODIUM BICARBO [Suspect]
     Active Substance: DIMETHICONE\POLYETHYLENE GLYCOL 4000\POTASSIUM CHLORIDE\SODIUM BICARBONATE\SODIUM CHLORIDE\SODIUM SU
     Indication: Bowel preparation
     Dosage: 2 SACHETS IN THE MORNING AND AT NOON FOR 24 HOURS (2 DOSAGE FORMS)
     Route: 048
     Dates: start: 20240706, end: 20240707
  4. SENNA LEAF [Suspect]
     Active Substance: SENNA LEAF
     Indication: Bowel preparation
     Dosage: 1 DOSAGE FORMS, 1 IN 1 TOTAL
     Route: 048
     Dates: start: 20240704, end: 20240704

REACTIONS (2)
  - Petechiae [Recovering/Resolving]
  - Rash pruritic [Recovering/Resolving]

NARRATIVE: CASE EVENT DATE: 20240706
